FAERS Safety Report 7681560 (Version 2)
Quarter: 2012Q4

REPORT INFORMATION
  Report Type: 
  Country: US (occurrence: US)
  Receive Date: 20101124
  Receipt Date: 20120831
  Transmission Date: 20130627
  Serious: Yes (Hospitalization)
  Sender: FDA-Public Use
  Company Number: US-US-EMD SERONO, INC.-7028315

PATIENT
  Age: 29 None
  Sex: Female
  Weight: 84 kg

DRUGS (7)
  1. REBIF [Suspect]
     Indication: MULTIPLE SCLEROSIS
     Route: 058
     Dates: start: 200508, end: 200602
  2. REBIF [Suspect]
     Route: 058
     Dates: start: 20061113
  3. MULTIVITAMIN [Concomitant]
  4. PROVIGIL [Concomitant]
  5. GABAPENTIN [Concomitant]
     Indication: CONVULSION
  6. ALEVE [Concomitant]
     Indication: PREMEDICATION
  7. TYLENOL [Concomitant]
     Indication: PREMEDICATION

REACTIONS (5)
  - Intervertebral disc protrusion [Recovering/Resolving]
  - Gastrooesophageal reflux disease [Recovering/Resolving]
  - Nodule [Unknown]
  - Insomnia [Unknown]
  - Influenza like illness [Not Recovered/Not Resolved]
